FAERS Safety Report 7270834-7 (Version None)
Quarter: 2011Q1

REPORT INFORMATION
  Report Type: 
  Country: None (occurrence: None)
  Receive Date: 20110125
  Receipt Date: 20110125
  Transmission Date: 20110831
  Serious: Yes (Other)
  Sender: FDA-Public Use
  Company Number: None

PATIENT
  Sex: Female

DRUGS (2)
  1. GEODON [Suspect]
     Indication: MAJOR DEPRESSION
     Dates: start: 20101211, end: 20101211
  2. GEODON [Suspect]
     Indication: PSYCHOTIC BEHAVIOUR
     Dates: start: 20101211, end: 20101211

REACTIONS (2)
  - DYSTONIA [None]
  - TREMOR [None]
